FAERS Safety Report 6092941-7 (Version None)
Quarter: 2009Q1

REPORT INFORMATION
  Report Type: 
  Country: None (occurrence: None)
  Receive Date: 20090225
  Receipt Date: 20090220
  Transmission Date: 20090719
  Serious: Yes (Hospitalization)
  Sender: FDA-Public Use
  Company Number: US-GILEAD-2009-0020427

PATIENT
  Sex: Male
  Weight: 63.56 kg

DRUGS (13)
  1. LETAIRIS [Suspect]
     Indication: PULMONARY ARTERIAL HYPERTENSION
     Route: 048
     Dates: start: 20080202
  2. REVATIO [Concomitant]
  3. COUMADIN [Concomitant]
  4. SPIRONOLACTONE [Concomitant]
  5. PERSANTINE [Concomitant]
  6. METHYLPREDNISOLONE 4MG TAB [Concomitant]
  7. PULMICORT-100 [Concomitant]
  8. THEO-24 [Concomitant]
  9. FORADIL [Concomitant]
  10. SINGULAIR [Concomitant]
  11. XOPENEX [Concomitant]
  12. OXYGEN [Concomitant]
  13. ROCEPHIN [Concomitant]

REACTIONS (1)
  - UPPER RESPIRATORY TRACT INFECTION [None]
